FAERS Safety Report 8763338 (Version 2)
Quarter: 2012Q4

REPORT INFORMATION
  Report Type: 
  Country: US (occurrence: US)
  Receive Date: 20120831
  Receipt Date: 20121210
  Transmission Date: 20130627
  Serious: No
  Sender: FDA-Public Use
  Company Number: US-PFIZER INC-2012212130

PATIENT

DRUGS (1)
  1. NARDIL [Suspect]
     Dosage: 15 mg, 3x/day

REACTIONS (1)
  - Platelet count decreased [Unknown]
